FAERS Safety Report 4896917-4 (Version None)
Quarter: 2006Q1

REPORT INFORMATION
  Report Type: 
  Country: None (occurrence: None)
  Receive Date: 20060127
  Receipt Date: 20060118
  Transmission Date: 20060701
  Serious: Yes (Other)
  Sender: FDA-Public Use
  Company Number: 2005173098

PATIENT
  Age: 58 Year
  Sex: Male

DRUGS (2)
  1. LIPITOR [Suspect]
     Indication: DYSLIPIDAEMIA
     Dosage: 10 MG (10 MG, 1 IN 1 D), ORAL
     Route: 048
     Dates: start: 20030701
  2. ENALAPRIL MALEATE [Concomitant]

REACTIONS (3)
  - BONE DENSITY DECREASED [None]
  - PROSTHESIS IMPLANTATION [None]
  - WEIGHT DECREASED [None]
